FAERS Safety Report 5989377-3 (Version None)
Quarter: 2008Q4

REPORT INFORMATION
  Report Type: 
  Country: None (occurrence: None)
  Receive Date: 20081210
  Receipt Date: 20081204
  Transmission Date: 20090506
  Serious: Yes (Hospitalization)
  Sender: FDA-Public Use
  Company Number: US-GILEAD-2008-0019333

PATIENT
  Sex: Male

DRUGS (8)
  1. LETAIRIS [Suspect]
     Indication: PULMONARY ARTERIAL HYPERTENSION
     Route: 048
     Dates: start: 20080804
  2. REVATIO [Concomitant]
  3. LASIX [Concomitant]
  4. LACTULOSE [Concomitant]
  5. ZOLOFT [Concomitant]
  6. KLOR-CON [Concomitant]
  7. NEXIUM [Concomitant]
  8. METHADONE HCL [Concomitant]

REACTIONS (2)
  - CELLULITIS [None]
  - PYREXIA [None]
